FAERS Safety Report 8249883-8 (Version None)
Quarter: 2012Q2

REPORT INFORMATION
  Report Type: 
  Country: None (occurrence: None)
  Receive Date: 20120402
  Receipt Date: 20120328
  Transmission Date: 20120825
  Serious: Yes (Hospitalization, Other)
  Sender: FDA-Public Use
  Company Number: PHHY2011VE108643

PATIENT
  Sex: Female

DRUGS (6)
  1. ZOLEDRONOC ACID [Suspect]
     Dosage: 5 MG, UNK
     Route: 042
     Dates: start: 20110409
  2. ZOLEDRONOC ACID [Suspect]
     Indication: OSTEOPOROSIS
     Dosage: 5 MG, UNK
     Route: 042
     Dates: start: 20091221
  3. LOVAZA [Concomitant]
     Dosage: UNK UKN, UNK
     Dates: start: 20090101
  4. TEOCOLISEN [Concomitant]
     Indication: PAIN
     Dosage: 50 MG, UNK
  5. PLESVIN [Concomitant]
     Indication: CARDIAC DISORDER
     Dosage: 50 MG, UNK, ONCE A DAY
  6. CALCIUM CARBONATE [Concomitant]
     Dates: start: 20090101

REACTIONS (6)
  - INFLUENZA [None]
  - BRONCHITIS [None]
  - FALL [None]
  - SPINAL FRACTURE [None]
  - ARTHRALGIA [None]
  - LOWER LIMB FRACTURE [None]
